FAERS Safety Report 9701430 (Version 2)
Quarter: 2013Q4

REPORT INFORMATION
  Report Type: Spontaneous
  Country: US (occurrence: US)
  Receive Date: 20131121
  Receipt Date: 20131121
  Transmission Date: 20140711
  Serious: Yes (Other)
  Sender: FDA-Public Use
  Company Number: US-GILEAD-2008-0016427

PATIENT
  Age: 57 Year
  Sex: Male
  Weight: 167.83 kg

DRUGS (10)
  1. LETAIRIS [Suspect]
     Indication: PULMONARY ARTERIAL HYPERTENSION
     Route: 048
     Dates: start: 20080418
  2. REVATIO [Concomitant]
     Route: 048
  3. CARVEDILOL [Concomitant]
     Route: 048
  4. LIPITOR [Concomitant]
     Route: 048
  5. FUROSEMIDE [Concomitant]
     Route: 048
  6. JANUVIA [Concomitant]
     Route: 048
  7. GLIMEPIRIDE [Concomitant]
     Route: 048
  8. ALLEGRA [Concomitant]
     Route: 048
  9. LODINE [Concomitant]
     Route: 048
  10. KLOR-CON M20 [Concomitant]
     Route: 048

REACTIONS (4)
  - Abnormal weight gain [None]
  - Fluid retention [None]
  - Headache [None]
  - Nasal congestion [None]
